FAERS Safety Report 23499286 (Version 1)
Quarter: 2024Q1

REPORT INFORMATION
  Report Type: Spontaneous
  Country: US (occurrence: US)
  Receive Date: 20240208
  Receipt Date: 20240208
  Transmission Date: 20240410
  Serious: Yes (Hospitalization, Other)
  Sender: FDA-Public Use
  Company Number: US-AMGEN-USASP2024023363

PATIENT

DRUGS (2)
  1. FILGRASTIM [Suspect]
     Active Substance: FILGRASTIM
     Indication: Prophylaxis
     Dosage: UNK
     Route: 065
  2. PEGFILGRASTIM [Suspect]
     Active Substance: PEGFILGRASTIM
     Indication: Prophylaxis
     Dosage: UNK
     Route: 065

REACTIONS (7)
  - Pancreatic carcinoma metastatic [Unknown]
  - Febrile neutropenia [Unknown]
  - Unevaluable event [Unknown]
  - Post procedural complication [Unknown]
  - Postoperative wound infection [Unknown]
  - Therapy non-responder [Unknown]
  - Therapy partial responder [Unknown]
